FAERS Safety Report 5066228-5 (Version None)
Quarter: 2006Q3

REPORT INFORMATION
  Report Type: 
  Country: None (occurrence: None)
  Receive Date: 20060728
  Receipt Date: 20060719
  Transmission Date: 20061208
  Serious: Yes (Death, Other)
  Sender: FDA-Public Use
  Company Number: 2006BI006691

PATIENT
  Age: 49 Year
  Sex: Female

DRUGS (1)
  1. AVONEX [Suspect]
     Indication: MULTIPLE SCLEROSIS
     Dosage: IM
     Route: 030
     Dates: start: 20000901, end: 20020501

REACTIONS (3)
  - LUNG CANCER METASTATIC [None]
  - METASTASES TO SPINE [None]
  - NON-SMALL CELL LUNG CANCER STAGE III [None]
